FAERS Safety Report 20816921 (Version 1)
Quarter: 2022Q2

REPORT INFORMATION
  Report Type: Spontaneous
  Country: CH (occurrence: None)
  Receive Date: 20220512
  Receipt Date: 20220512
  Transmission Date: 20220721
  Serious: Yes (Other)
  Sender: FDA-Public Use
  Company Number: CH-ROCHE-3093979

PATIENT
  Sex: Female
  Weight: 65 kg

DRUGS (10)
  1. HERCEPTIN [Suspect]
     Active Substance: TRASTUZUMAB
     Indication: Invasive breast carcinoma
     Dosage: 6 CYCLES OF PALLIATIVE IMMUNE-CHEMOTHERAPY
     Route: 065
     Dates: start: 20150817, end: 20151130
  2. HERCEPTIN [Suspect]
     Active Substance: TRASTUZUMAB
     Route: 065
     Dates: start: 20151221, end: 20200512
  3. HERCEPTIN [Suspect]
     Active Substance: TRASTUZUMAB
     Route: 065
     Dates: start: 20210129, end: 20210812
  4. PERJETA [Suspect]
     Active Substance: PERTUZUMAB
     Indication: Invasive breast carcinoma
     Dosage: 6 CYCLES OF PALLIATIVE IMMUNE-CHEMOTHERAPY
     Route: 065
     Dates: start: 20150817, end: 20151130
  5. PERJETA [Suspect]
     Active Substance: PERTUZUMAB
     Route: 065
     Dates: start: 20151221, end: 20200512
  6. KADCYLA [Suspect]
     Active Substance: ADO-TRASTUZUMAB EMTANSINE
     Indication: Invasive breast carcinoma
     Dosage: PALLIATIVE SECOND LINE IMMUNOTHERAPY
     Route: 065
     Dates: start: 20200611, end: 20201209
  7. XELODA [Suspect]
     Active Substance: CAPECITABINE
     Indication: Invasive breast carcinoma
     Route: 065
     Dates: start: 20210129, end: 20210812
  8. TAXOTERE [Suspect]
     Active Substance: DOCETAXEL
     Indication: Invasive breast carcinoma
     Route: 065
     Dates: start: 20150817, end: 20151130
  9. TUKYSA [Suspect]
     Active Substance: TUCATINIB
     Indication: Invasive breast carcinoma
     Route: 065
     Dates: start: 20210129, end: 20210812
  10. ENHERTU [Suspect]
     Active Substance: FAM-TRASTUZUMAB DERUXTECAN-NXKI
     Indication: Invasive breast carcinoma
     Dosage: 9 CYCLES OF TRASTUZUMAB-DERUXTECAN
     Route: 065
     Dates: start: 20211011, end: 20220328

REACTIONS (1)
  - Disease progression [Unknown]
